FAERS Safety Report 8275377-X (Version None)
Quarter: 2012Q2

REPORT INFORMATION
  Report Type: 
  Country: None (occurrence: None)
  Receive Date: 20120411
  Receipt Date: 20120328
  Transmission Date: 20120825
  Serious: Yes (Death)
  Sender: FDA-Public Use
  Company Number: CH-ROCHE-1053595

PATIENT
  Age: 72 Year
  Sex: Female

DRUGS (4)
  1. FLUOROURACIL [Interacting]
     Indication: OESOPHAGEAL CARCINOMA
     Route: 041
     Dates: start: 20120208, end: 20120211
  2. PREDNISONE TAB [Interacting]
     Indication: MYASTHENIA GRAVIS
     Dosage: DOSE NOT CHANGED
     Route: 048
     Dates: start: 20090101
  3. MYCOPHENOLATE MOFETIL (CELLCEPT) [Suspect]
     Indication: MYASTHENIA GRAVIS
     Dosage: DRUG WITHDRAWN
     Route: 048
     Dates: start: 20090101, end: 20120219
  4. CISPLATIN [Interacting]
     Indication: OESOPHAGEAL CARCINOMA
     Route: 040
     Dates: start: 20120208, end: 20120208

REACTIONS (8)
  - PANCYTOPENIA [None]
  - MYASTHENIC SYNDROME [None]
  - LYMPHOPENIA [None]
  - OESOPHAGEAL CARCINOMA [None]
  - RENAL FAILURE ACUTE [None]
  - SEPSIS [None]
  - ANAEMIA [None]
  - STOMATITIS [None]
